FAERS Safety Report 7283602-7 (Version None)
Quarter: 2011Q1

REPORT INFORMATION
  Report Type: 
  Country: None (occurrence: None)
  Receive Date: 20110209
  Receipt Date: 20110131
  Transmission Date: 20110831
  Serious: Yes (Other)
  Sender: FDA-Public Use
  Company Number: B0526352B

PATIENT
  Sex: Female

DRUGS (5)
  1. TRASTUZUMAB [Suspect]
     Indication: BREAST CANCER
     Dosage: 2MGK WEEKLY
     Route: 042
     Dates: start: 20080430, end: 20090423
  2. PACLITAXEL [Suspect]
     Indication: BREAST CANCER
     Dosage: 80MGM2 WEEKLY
     Route: 042
     Dates: start: 20080430, end: 20080827
  3. ADRIAMYCIN PFS [Suspect]
     Dosage: 106MG PER DAY
     Dates: start: 20080226, end: 20080409
  4. LAPATINIB [Suspect]
     Indication: BREAST CANCER
     Dosage: 1000MG PER DAY
     Route: 048
     Dates: start: 20080430, end: 20080723
  5. CYCLOPHOSPHAMIDE [Suspect]

REACTIONS (4)
  - NEUTROPHIL COUNT DECREASED [None]
  - MYELODYSPLASTIC SYNDROME [None]
  - NEUTROPENIA [None]
  - LEUKOPENIA [None]
